FAERS Safety Report 12582153 (Version 1)
Quarter: 2016Q3

REPORT INFORMATION
  Report Type: Spontaneous
  Country: US (occurrence: None)
  Receive Date: 20160721
  Receipt Date: 20160721
  Transmission Date: 20161109
  Serious: Yes (Hospitalization)
  Sender: FDA-Public Use
  Company Number: None

PATIENT
  Age: 40 Year
  Sex: Female

DRUGS (2)
  1. TAMOXIFEN [Concomitant]
     Active Substance: TAMOXIFEN
  2. IBRANCE [Suspect]
     Active Substance: PALBOCICLIB
     Indication: GASTROINTESTINAL CARCINOMA
     Route: 048
     Dates: start: 20150925, end: 201603

REACTIONS (3)
  - Unevaluable event [None]
  - Drug ineffective [None]
  - Hospitalisation [None]

NARRATIVE: CASE EVENT DATE: 201603
